FAERS Safety Report 7357728-3 (Version None)
Quarter: 2011Q1

REPORT INFORMATION
  Report Type: 
  Country: None (occurrence: None)
  Receive Date: 20110309
  Receipt Date: 20110224
  Transmission Date: 20110831
  Serious: Yes (Death, Hospitalization)
  Sender: FDA-Public Use
  Company Number: 1000018573

PATIENT
  Age: 86 Year
  Sex: Female

DRUGS (6)
  1. TETRAMIDE (MIANSERIN HYDROCHLORIDE) [Suspect]
     Indication: DEMENTIA ALZHEIMER'S TYPE
     Dosage: 10 MG, (10 MG, 1 IN 1 D),ORAL
     Route: 048
     Dates: start: 20080910, end: 20110125
  2. GASMOTIN (MOSAPRIDE CITRATE) [Suspect]
     Indication: ABDOMINAL PAIN
     Dosage: 15 MG (5 MG, 3 IN 1 D), ORAL
     Route: 048
     Dates: start: 20110118, end: 20110126
  3. MEMANTINE [Suspect]
     Indication: DEMENTIA ALZHEIMER'S TYPE
     Dosage: 20 MG (20 MG, 1 IN 1 D), ORAL
     Route: 048
     Dates: start: 20080911, end: 20110126
  4. GLIMICRON HA (GLICLAZIDE) [Suspect]
     Indication: DIABETES MELLITUS
     Dosage: 20 MG (20 MG, 1 IN 1 D), ORAL
     Route: 048
     Dates: start: 20080910, end: 20110126
  5. DAI-KENCHU-TO (HERBAL EXTRACT NOS) [Suspect]
     Indication: ABDOMINAL PAIN
     Dosage: 7.5 MG (2.5 MG, 3 IN 1 D), ORAL
     Route: 048
     Dates: start: 20110118, end: 20110126
  6. ADALAT [Suspect]
     Indication: HYPERTENSION
     Dosage: 20 MG (10 MG, 2 IN 1 D), ORAL
     Route: 048
     Dates: start: 20080910, end: 20110126

REACTIONS (8)
  - FEELING ABNORMAL [None]
  - CARDIAC FAILURE [None]
  - FALL [None]
  - CARDIO-RESPIRATORY ARREST [None]
  - LOSS OF CONSCIOUSNESS [None]
  - WHEEZING [None]
  - PULSELESS ELECTRICAL ACTIVITY [None]
  - ACUTE MYOCARDIAL INFARCTION [None]
